FAERS Safety Report 5086759-1 (Version None)
Quarter: 2006Q3

REPORT INFORMATION
  Report Type: 
  Country: None (occurrence: None)
  Receive Date: 20060823
  Receipt Date: 20060814
  Transmission Date: 20061208
  Serious: Yes (Hospitalization)
  Sender: FDA-Public Use
  Company Number: GB-ROCHE-460006

PATIENT
  Age: 37 Year
  Sex: Male
  Weight: 105.4 kg

DRUGS (5)
  1. XENICAL [Suspect]
     Indication: OBESITY
     Route: 048
     Dates: start: 20060621
  2. RANITIDINE [Concomitant]
     Route: 048
  3. TRAMADOL HCL [Concomitant]
     Route: 048
  4. CITRAZINE [Concomitant]
     Route: 048
  5. VOLTAREN [Concomitant]
     Route: 048

REACTIONS (3)
  - BUTTOCK PAIN [None]
  - DIARRHOEA [None]
  - SYSTEMIC LUPUS ERYTHEMATOSUS [None]
